FAERS Safety Report 8271874-1 (Version None)
Quarter: 2012Q1

REPORT INFORMATION
  Report Type: 
  Country: None (occurrence: None)
  Receive Date: 20120312
  Receipt Date: 20111206
  Transmission Date: 20120608
  Serious: No
  Sender: FDA-Public Use
  Company Number: 2011SP057453

PATIENT
  Age: 13 Year
  Sex: Female

DRUGS (3)
  1. SAPHRIS [Suspect]
     Indication: DEPRESSION
     Dosage: 10 MG;BID;SL
     Route: 060
     Dates: start: 20111201, end: 20111202
  2. SAPHRIS [Suspect]
     Indication: ANXIETY
     Dosage: 10 MG;BID;SL
     Route: 060
     Dates: start: 20111201, end: 20111202
  3. SAPHRIS [Suspect]
     Indication: BIPOLAR DISORDER
     Dosage: 10 MG;BID;SL
     Route: 060
     Dates: start: 20111201, end: 20111202

REACTIONS (2)
  - SYNCOPE [None]
  - DRUG ADMINISTERED TO PATIENT OF INAPPROPRIATE AGE [None]
